FAERS Safety Report 5069211-9 (Version None)
Quarter: 2006Q3

REPORT INFORMATION
  Report Type: 
  Country: None (occurrence: None)
  Receive Date: 20060803
  Receipt Date: 20060724
  Transmission Date: 20061208
  Serious: Yes (Hospitalization)
  Sender: FDA-Public Use
  Company Number: GB-JNJFOC-20041105090

PATIENT
  Age: 54 Year
  Sex: Female
  Weight: 61.9 kg

DRUGS (8)
  1. REMICADE [Suspect]
     Indication: RHEUMATOID ARTHRITIS
     Route: 042
  2. METHOTREXATE [Concomitant]
     Indication: RHEUMATOID ARTHRITIS
     Route: 048
  3. FOLIC ACID [Concomitant]
     Indication: RHEUMATOID ARTHRITIS
     Route: 048
  4. ATENOLOL [Concomitant]
     Indication: HYPERTENSION
     Route: 048
  5. FELODIPINE [Concomitant]
     Indication: HYPERTENSION
     Route: 048
  6. LANSOPRAZOLE [Concomitant]
     Indication: GASTROINTESTINAL DISORDER THERAPY
     Route: 048
  7. PREDNISOLONE [Concomitant]
     Indication: RHEUMATOID ARTHRITIS
     Route: 048
  8. ADCAL-D3 [Concomitant]
     Indication: PROPHYLAXIS
     Route: 048

REACTIONS (5)
  - ARTHRALGIA [None]
  - INFLUENZA LIKE ILLNESS [None]
  - LUPUS-LIKE SYNDROME [None]
  - LYMPHOPENIA [None]
  - RASH PAPULAR [None]
